FAERS Safety Report 8617153-1 (Version None)
Quarter: 2012Q3

REPORT INFORMATION
  Report Type: 
  Country: None (occurrence: None)
  Receive Date: 20120823
  Receipt Date: 20120820
  Transmission Date: 20120928
  Serious: No
  Sender: FDA-Public Use
  Company Number: US-PFIZER INC-2012204197

PATIENT
  Sex: Female

DRUGS (2)
  1. LEVOTHROID [Concomitant]
     Indication: THYROID DISORDER
     Dosage: UNK
  2. GABAPENTIN [Suspect]
     Indication: MIGRAINE
     Dosage: 100 MG, DAILY
     Dates: start: 20120801

REACTIONS (2)
  - MICTURITION URGENCY [None]
  - BLADDER PAIN [None]
